FAERS Safety Report 5665413-9 (Version None)
Quarter: 2008Q1

REPORT INFORMATION
  Report Type: 
  Country: None (occurrence: None)
  Receive Date: 20080314
  Receipt Date: 20071203
  Transmission Date: 20080703
  Serious: No
  Sender: FDA-Public Use
  Company Number: US-ABBOTT-07P-163-0427759-00

PATIENT
  Sex: Female

DRUGS (6)
  1. HUMIRA [Suspect]
     Indication: COLITIS MICROSCOPIC
     Route: 058
     Dates: start: 20071101
  2. CELECOXIB [Concomitant]
     Indication: DRUG USE FOR UNKNOWN INDICATION
  3. ENDOCORT [Concomitant]
     Indication: DRUG USE FOR UNKNOWN INDICATION
  4. INHALER [Concomitant]
     Indication: ASTHMA
  5. ROSUVASTATIN [Concomitant]
     Indication: DRUG USE FOR UNKNOWN INDICATION
  6. PARACETAMOL [Concomitant]
     Indication: DRUG USE FOR UNKNOWN INDICATION

REACTIONS (2)
  - FACIAL PAIN [None]
  - GLOSSODYNIA [None]
